FAERS Safety Report 7951690-8 (Version None)
Quarter: 2011Q4

REPORT INFORMATION
  Report Type: 
  Country: None (occurrence: None)
  Receive Date: 20111201
  Receipt Date: 20111128
  Transmission Date: 20120403
  Serious: Yes (Other)
  Sender: FDA-Public Use
  Company Number: US-PFIZER INC-2011289672

PATIENT

DRUGS (1)
  1. DEPO-PROVERA [Suspect]
     Dosage: UNK

REACTIONS (7)
  - FEELING ABNORMAL [None]
  - WEIGHT DECREASED [None]
  - PARANOIA [None]
  - NEGATIVE THOUGHTS [None]
  - TOOTHACHE [None]
  - ASTHENIA [None]
  - MALAISE [None]
